FAERS Safety Report 9423148 (Version 2)
Quarter: 2013Q4

REPORT INFORMATION
  Report Type: Spontaneous
  Country: GB (occurrence: GB)
  Receive Date: 20130726
  Receipt Date: 20131104
  Transmission Date: 20140711
  Serious: Yes (Life-Threatening, Hospitalization, Other)
  Sender: FDA-Public Use
  Company Number: GB-BRISTOL-MYERS SQUIBB COMPANY-19138403

PATIENT
  Age: 78 Year
  Sex: Male
  Weight: 100 kg

DRUGS (9)
  1. ONGLYZA TABS [Suspect]
     Indication: DIABETES MELLITUS
     Route: 048
     Dates: start: 20120724, end: 20130702
  2. ASPIRIN [Concomitant]
  3. FUROSEMIDE [Concomitant]
  4. OMEPRAZOLE [Concomitant]
  5. PERINDOPRIL [Concomitant]
  6. INDAPAMIDE [Concomitant]
  7. DOXAZOSIN [Concomitant]
  8. FERROUS FUMARATE [Concomitant]
  9. INSULATARD [Concomitant]

REACTIONS (1)
  - Pancreatic carcinoma metastatic [Unknown]
